FAERS Safety Report 25510573 (Version 1)
Quarter: 2025Q3

REPORT INFORMATION
  Report Type: Spontaneous
  Country: CN (occurrence: CN)
  Receive Date: 20250703
  Receipt Date: 20250703
  Transmission Date: 20251021
  Serious: Yes (Hospitalization)
  Sender: ORGANON
  Company Number: CN-BAT-2025BAT000598

PATIENT
  Age: 35 Year
  Sex: Female
  Weight: 54.5 kg

DRUGS (2)
  1. TOCILIZUMAB-BAVI [Suspect]
     Active Substance: TOCILIZUMAB-BAVI
     Indication: Still^s disease
     Route: 041
     Dates: start: 20250615, end: 20250615
  2. SODIUM CHLORIDE [Concomitant]
     Active Substance: SODIUM CHLORIDE
     Indication: Vehicle solution use
     Route: 041
     Dates: start: 20250615, end: 20250615

REACTIONS (10)
  - Dyspnoea [Recovering/Resolving]
  - Chest pain [Recovering/Resolving]
  - Chills [Recovering/Resolving]
  - Rash erythematous [Recovering/Resolving]
  - Pruritus [Recovered/Resolved]
  - Skin tightness [Recovered/Resolved]
  - Vomiting [Unknown]
  - Hypotension [Recovering/Resolving]
  - Heart rate increased [Recovering/Resolving]
  - Product use in unapproved indication [Unknown]

NARRATIVE: CASE EVENT DATE: 20250615
